FAERS Safety Report 24201988 (Version 3)
Quarter: 2024Q3

REPORT INFORMATION
  Report Type: Report from Study
  Country: TW (occurrence: TW)
  Receive Date: 20240812
  Receipt Date: 20240821
  Transmission Date: 20241016
  Serious: Yes (Death, Hospitalization)
  Sender: EISAI
  Company Number: TW-Eisai-EC-2024-171893

PATIENT
  Age: 87 Year
  Sex: Female
  Weight: 51 kg

DRUGS (15)
  1. LENVIMA [Suspect]
     Active Substance: LENVATINIB
     Indication: Thyroid cancer
     Route: 048
     Dates: start: 20240403, end: 20240603
  2. LENVIMA [Suspect]
     Active Substance: LENVATINIB
     Indication: Renal cell carcinoma
  3. LENVIMA [Suspect]
     Active Substance: LENVATINIB
     Indication: Hepatic cancer
  4. LENVIMA [Suspect]
     Active Substance: LENVATINIB
     Indication: Endometrial cancer
  5. FAMOTIDINE [Concomitant]
     Active Substance: FAMOTIDINE
     Indication: Duodenal ulcer
     Route: 048
     Dates: start: 20240718, end: 20240731
  6. FAMOTIDINE [Concomitant]
     Active Substance: FAMOTIDINE
     Indication: Oesophagitis
  7. FAMOTIDINE [Concomitant]
     Active Substance: FAMOTIDINE
     Indication: Gastrooesophageal reflux disease
  8. FAMOTIDINE [Concomitant]
     Active Substance: FAMOTIDINE
     Indication: Hyperchlorhydria
  9. FAMOTIDINE [Concomitant]
     Active Substance: FAMOTIDINE
     Indication: Dyspepsia
  10. DICYCLOMINE HYDROCHLORIDE [Concomitant]
     Active Substance: DICYCLOMINE HYDROCHLORIDE
     Indication: Gastrointestinal motility disorder
     Route: 048
     Dates: start: 20240718, end: 2024
  11. CEFIXIME [Concomitant]
     Active Substance: CEFIXIME
     Indication: Gonococcal infection
     Route: 048
     Dates: start: 20240711, end: 20240717
  12. CEFIXIME [Concomitant]
     Active Substance: CEFIXIME
     Indication: Pharyngitis streptococcal
  13. CEFIXIME [Concomitant]
     Active Substance: CEFIXIME
     Indication: Urinary tract infection
  14. CLOPIDOGREL BISULFATE [Concomitant]
     Active Substance: CLOPIDOGREL BISULFATE
     Indication: Thrombosis prophylaxis
     Route: 048
     Dates: start: 20240718, end: 2024
  15. DIPHENIDOL HYDROCHLORIDE [Concomitant]
     Active Substance: DIPHENIDOL HYDROCHLORIDE
     Indication: Vertigo
     Route: 048
     Dates: start: 20240718, end: 2024

REACTIONS (4)
  - Malignant neoplasm progression [Fatal]
  - Tachypnoea [Unknown]
  - Altered state of consciousness [Unknown]
  - Dysuria [Unknown]

NARRATIVE: CASE EVENT DATE: 20240803
